FAERS Safety Report 13053864 (Version 10)
Quarter: 2017Q4

REPORT INFORMATION
  Report Type: Report from Study
  Country: US (occurrence: US)
  Receive Date: 20161222
  Receipt Date: 20171110
  Transmission Date: 20180320
  Serious: Yes (Hospitalization, Other)
  Sender: FDA-Public Use
  Company Number: US-BAYER-2016-116622

PATIENT
  Age: 69 Year
  Sex: Female
  Weight: 78.46 kg

DRUGS (14)
  1. ADEMPAS [Suspect]
     Active Substance: RIOCIGUAT
     Indication: PULMONARY HYPERTENSION
     Dosage: 2.5 MG, TID
     Route: 048
  2. ADEMPAS [Suspect]
     Active Substance: RIOCIGUAT
     Indication: PULMONARY HYPERTENSION
     Dosage: 2.5 MG, TID
     Route: 048
  3. ADEMPAS [Suspect]
     Active Substance: RIOCIGUAT
     Indication: PULMONARY HYPERTENSION
     Dosage: 2.5 MG, TID
     Route: 048
  4. ADEMPAS [Suspect]
     Active Substance: RIOCIGUAT
     Indication: PULMONARY HYPERTENSION
     Dosage: 2.5 MG, TID
     Route: 048
  5. ADEMPAS [Suspect]
     Active Substance: RIOCIGUAT
     Indication: PULMONARY HYPERTENSION
     Dosage: 2.5 MG, TID
     Route: 048
  6. LETAIRIS [Concomitant]
     Active Substance: AMBRISENTAN
     Dosage: UNK
  7. ADEMPAS [Suspect]
     Active Substance: RIOCIGUAT
     Indication: PULMONARY HYPERTENSION
     Dosage: 2 MG, TID
     Route: 048
  8. ADCIRCA [Concomitant]
     Active Substance: TADALAFIL
     Dosage: UNK
  9. ADEMPAS [Suspect]
     Active Substance: RIOCIGUAT
     Indication: PULMONARY HYPERTENSION
     Dosage: UNK
     Dates: start: 20160208
  10. AMLODIPINE [Concomitant]
     Active Substance: AMLODIPINE BESYLATE
     Dosage: UNK
  11. ORENITRAM [Concomitant]
     Active Substance: TREPROSTINIL
     Dosage: UNK
  12. ADEMPAS [Suspect]
     Active Substance: RIOCIGUAT
     Indication: PULMONARY HYPERTENSION
     Dosage: 2.5 MG, TID
     Route: 048
  13. TYVASO [Concomitant]
     Active Substance: TREPROSTINIL
     Dosage: UNK
  14. XYZAL [Concomitant]
     Active Substance: LEVOCETIRIZINE DIHYDROCHLORIDE
     Dosage: UNK

REACTIONS (24)
  - Chest pain [None]
  - Memory impairment [None]
  - Echocardiogram abnormal [None]
  - Headache [Unknown]
  - Dyspepsia [Unknown]
  - Pulmonary arterial hypertension [None]
  - Muscle spasms [Unknown]
  - Nasal congestion [Unknown]
  - Anxiety [Unknown]
  - Chest discomfort [Unknown]
  - Dyspnoea exertional [Recovering/Resolving]
  - Throat irritation [Unknown]
  - Gastrooesophageal reflux disease [Not Recovered/Not Resolved]
  - Anxiety [Unknown]
  - Anxiety [Not Recovered/Not Resolved]
  - Nasopharyngitis [None]
  - Chest discomfort [Recovered/Resolved]
  - Fluid retention [Unknown]
  - Dyspnoea [Not Recovered/Not Resolved]
  - Weight decreased [Not Recovered/Not Resolved]
  - Poor quality sleep [Unknown]
  - Muscular weakness [Unknown]
  - Influenza [None]
  - Stress [Unknown]

NARRATIVE: CASE EVENT DATE: 2017
